FAERS Safety Report 7627883-6 (Version None)
Quarter: 2011Q3

REPORT INFORMATION
  Report Type: 
  Country: None (occurrence: None)
  Receive Date: 20110721
  Receipt Date: 20110711
  Transmission Date: 20111222
  Serious: Yes (Hospitalization, Other)
  Sender: FDA-Public Use
  Company Number: US-ASTRAZENECA-2011SE36199

PATIENT
  Age: 54 Year
  Sex: Female

DRUGS (9)
  1. SIMVASTATIN [Concomitant]
     Indication: HYPERCHOLESTEROLAEMIA
  2. AVINZA [Concomitant]
     Indication: PAIN
  3. LOVAZA [Concomitant]
     Indication: BLOOD TRIGLYCERIDES
  4. POTASSIUM [Concomitant]
  5. NEXIUM [Suspect]
     Route: 048
  6. METFORMIN HCL [Concomitant]
     Indication: DIABETES MELLITUS
  7. LORTAB [Concomitant]
     Indication: PAIN
  8. LEVOTHYROXINE SODIUM [Concomitant]
     Indication: THYROID DISORDER
  9. LASIX [Concomitant]
     Indication: OEDEMA

REACTIONS (9)
  - BARRETT'S OESOPHAGUS [None]
  - OESOPHAGEAL OPERATION [None]
  - DYSPHONIA [None]
  - DISABILITY [None]
  - SPINAL FRACTURE [None]
  - INTENTIONAL DRUG MISUSE [None]
  - SURGERY [None]
  - ROAD TRAFFIC ACCIDENT [None]
  - INAPPROPRIATE SCHEDULE OF DRUG ADMINISTRATION [None]
